FAERS Safety Report 5626583-1 (Version None)
Quarter: 2008Q1

REPORT INFORMATION
  Report Type: 
  Country: None (occurrence: None)
  Receive Date: 20080212
  Receipt Date: 20080129
  Transmission Date: 20080703
  Serious: Yes (Other)
  Sender: FDA-Public Use
  Company Number: 2007337256

PATIENT
  Age: 57 Year
  Sex: Female
  Weight: 102.0593 kg

DRUGS (4)
  1. LISTERINE WHITENING QUICK DISSOLVING STREIPS (NO ACTIVE INGREDIENT) [Suspect]
     Indication: DENTAL CARE
     Dosage: 1 STRIP IN THE MORNING AND BEFORE BED, ORAL
     Route: 048
     Dates: start: 20071030, end: 20071203
  2. DIGOXIN [Concomitant]
  3. ASPIRIN [Concomitant]
  4. NADOLOL [Concomitant]

REACTIONS (1)
  - HYPERSENSITIVITY [None]
